FAERS Safety Report 6050068-4 (Version None)
Quarter: 2009Q1

REPORT INFORMATION
  Report Type: 
  Country: None (occurrence: None)
  Receive Date: 20090126
  Receipt Date: 20090119
  Transmission Date: 20090719
  Serious: Yes (Hospitalization)
  Sender: FDA-Public Use
  Company Number: FR-BRISTOL-MYERS SQUIBB COMPANY-14476097

PATIENT
  Age: 48 Year
  Sex: Male

DRUGS (3)
  1. REYATAZ [Suspect]
     Indication: HIV INFECTION
     Dosage: 1 DF= 1 UNIT (UNITS NOT SPECIFIED)
     Route: 048
     Dates: start: 20060101, end: 20080507
  2. NORVIR [Suspect]
     Indication: HIV INFECTION
     Dosage: 1 DF= 1 UNIT (UNITS NOT SPECIFIED)
     Route: 048
     Dates: start: 20060101, end: 20080507
  3. TRUVADA [Suspect]
     Dosage: 1 DF= 1 UNIT (UNITS NOT SPECIFIED)
     Route: 048
     Dates: start: 20060101

REACTIONS (2)
  - CALCULUS URETERIC [None]
  - PYELONEPHRITIS [None]
